FAERS Safety Report 23781681 (Version 1)
Quarter: 2024Q2

REPORT INFORMATION
  Report Type: Spontaneous
  Country: NL (occurrence: NL)
  Receive Date: 20240425
  Receipt Date: 20240425
  Transmission Date: 20240715
  Serious: Yes (Hospitalization, Disabling)
  Sender: FDA-Public Use
  Company Number: None

PATIENT
  Age: 39 Year
  Sex: Female
  Weight: 80 kg

DRUGS (1)
  1. METHYLPHENIDATE [Suspect]
     Active Substance: METHYLPHENIDATE
     Indication: Attention deficit hyperactivity disorder
     Dosage: 1 PIECE TWICE A DAY??METHYLPHENIDATE TABLET 10MG / BRAND NAME NOT SPECIFIED
     Route: 065
     Dates: start: 20230101, end: 20240104

REACTIONS (2)
  - Cerebral infarction [Recovering/Resolving]
  - Palpitations [Unknown]
